FAERS Safety Report 19040550 (Version 2)
Quarter: 2021Q2

REPORT INFORMATION
  Report Type: Spontaneous
  Country: FR (occurrence: FR)
  Receive Date: 20210322
  Receipt Date: 20210602
  Transmission Date: 20210717
  Serious: Yes (Hospitalization, Other)
  Sender: FDA-Public Use
  Company Number: FR-PFIZER INC-2021255849

PATIENT
  Age: 58 Year
  Sex: Male

DRUGS (8)
  1. LYRICA [Concomitant]
     Active Substance: PREGABALIN
     Dosage: 25 MG
  2. (ERYASPASE) L?ASPARAGINASE ENCAPSULATED IN RED BLOOD CELLS [Suspect]
     Active Substance: ASPARAGINASE
     Indication: DUCTAL ADENOCARCINOMA OF PANCREAS
     Dosage: 200 IU/KG, EVERY 4 WEEKS
     Route: 042
     Dates: start: 20190301, end: 20190627
  3. OXYCONTIN [Concomitant]
     Active Substance: OXYCODONE HYDROCHLORIDE
     Indication: ABDOMINAL PAIN
     Dosage: 20 MG
     Route: 048
     Dates: start: 20180908
  4. CREON [Concomitant]
     Active Substance: PANCRELIPASE AMYLASE\PANCRELIPASE LIPASE\PANCRELIPASE PROTEASE
     Dosage: UNK
  5. OXYNORM [Concomitant]
     Active Substance: OXYCODONE HYDROCHLORIDE
     Indication: ABDOMINAL PAIN
     Dosage: 10 MG
     Route: 048
     Dates: start: 20180908
  6. GEMCITABINE HYDROCHLORIDE. [Suspect]
     Active Substance: GEMCITABINE HYDROCHLORIDE
     Indication: DUCTAL ADENOCARCINOMA OF PANCREAS
     Dosage: 2000 UG/M2, EVERY 4 WEEKS
     Route: 042
     Dates: start: 20190301, end: 20190613
  7. PANTOPRAZOLE [Concomitant]
     Active Substance: PANTOPRAZOLE
     Dosage: 40 MG, 1X/DAY
  8. ABRAXANE [Suspect]
     Active Substance: PACLITAXEL
     Indication: DUCTAL ADENOCARCINOMA OF PANCREAS
     Dosage: 250 MG/M2, EVERY 4 WEEKS
     Route: 042
     Dates: start: 20190301, end: 20190627

REACTIONS (2)
  - Haematocrit decreased [Unknown]
  - Pyrexia [Recovered/Resolved]

NARRATIVE: CASE EVENT DATE: 201906
